FAERS Safety Report 18669248 (Version 2)
Quarter: 2022Q4

REPORT INFORMATION
  Report Type: Spontaneous
  Country: US (occurrence: US)
  Receive Date: 20201228
  Receipt Date: 20221003
  Transmission Date: 20230112
  Serious: Yes (Other)
  Sender: FDA-Public Use
  Company Number: US-SAARTEMIS-SAC202012230431

PATIENT
  Age: 65 Year
  Sex: Male

DRUGS (2)
  1. ZANTAC [Suspect]
     Active Substance: RANITIDINE HYDROCHLORIDE
     Indication: Dyspepsia
     Dosage: 75 MG, QW
     Route: 065
     Dates: start: 198002
  2. ZANTAC [Suspect]
     Active Substance: RANITIDINE HYDROCHLORIDE
     Dosage: 75 MG, QW
     Route: 065
     Dates: start: 199501, end: 201806

REACTIONS (1)
  - Hepatic cancer stage I [Unknown]

NARRATIVE: CASE EVENT DATE: 20180104
